FAERS Safety Report 14225585 (Version 1)
Quarter: 2017Q4

REPORT INFORMATION
  Report Type: Spontaneous
  Country: US (occurrence: US)
  Receive Date: 20171126
  Receipt Date: 20171126
  Transmission Date: 20180321
  Serious: Yes (Disabling)
  Sender: FDA-Public Use
  Company Number: None

PATIENT
  Sex: Male
  Weight: 164.25 kg

DRUGS (13)
  1. L-THYROXINE [Concomitant]
     Active Substance: LEVOTHYROXINE
  2. AMOXICILLAN [Suspect]
     Active Substance: AMOXICILLIN
     Indication: EAR INFECTION
     Dosage: ?          QUANTITY:1 TABLET(S);?
     Route: 048
     Dates: start: 20171122, end: 20171123
  3. BUPROPION HCL [Concomitant]
     Active Substance: BUPROPION HYDROCHLORIDE
  4. NAPROXEN SODIUM. [Concomitant]
     Active Substance: NAPROXEN SODIUM
  5. AMOXICILLAN [Suspect]
     Active Substance: AMOXICILLIN
     Indication: LYMPHADENOPATHY
     Dosage: ?          QUANTITY:1 TABLET(S);?
     Route: 048
     Dates: start: 20171122, end: 20171123
  6. AMOXICILLAN [Suspect]
     Active Substance: AMOXICILLIN
     Indication: SWELLING
     Dosage: ?          QUANTITY:1 TABLET(S);?
     Route: 048
     Dates: start: 20171122, end: 20171123
  7. DOXEPINE [Concomitant]
     Active Substance: DOXEPIN
  8. OXCARBAZEPINE. [Concomitant]
     Active Substance: OXCARBAZEPINE
  9. QUETIAPINE FUMARATE. [Concomitant]
     Active Substance: QUETIAPINE FUMARATE
  10. ONE A DAY MEN^S HEALTH FORMULA MULTI-VITAMIN/MULTI-MINERAL SUPPLEMENT [Concomitant]
  11. ASPIRIN. [Concomitant]
     Active Substance: ASPIRIN
  12. METOPROLOL. [Concomitant]
     Active Substance: METOPROLOL
  13. CALCIUM [Concomitant]
     Active Substance: CALCIUM

REACTIONS (8)
  - Expired product administered [None]
  - Diarrhoea [None]
  - Vomiting [None]
  - Feeling of body temperature change [None]
  - Arthralgia [None]
  - Proctalgia [None]
  - Anal haemorrhage [None]
  - No reaction on previous exposure to drug [None]

NARRATIVE: CASE EVENT DATE: 20171124
